FAERS Safety Report 4775147-0 (Version None)
Quarter: 2005Q3

REPORT INFORMATION
  Report Type: 
  Country: None (occurrence: None)
  Receive Date: 20050920
  Receipt Date: 20050912
  Transmission Date: 20060218
  Serious: Yes (Other)
  Sender: FDA-Public Use
  Company Number: 2005057710

PATIENT
  Age: 72 Year
  Sex: Female
  Weight: 104.3273 kg

DRUGS (7)
  1. BEXTRA [Suspect]
     Indication: ARTHRITIS
     Dosage: 20 MG (20 MG, 1 IN 1 D)
     Dates: start: 20040101
  2. PAXIL [Concomitant]
  3. LORCET PLUS (HYDROCODONE BITARTRATE, PARACETAMOL) [Concomitant]
  4. ANTI-DIABETICS [Concomitant]
  5. AMBIEN [Concomitant]
  6. ANTIBIOTICS [Concomitant]
  7. TYLENOL (PARACETAMOL) [Concomitant]

REACTIONS (11)
  - BRONCHITIS [None]
  - DYSPHAGIA [None]
  - EAR PAIN [None]
  - FEELING ABNORMAL [None]
  - MEDICAL DEVICE COMPLICATION [None]
  - ORAL PAIN [None]
  - PHARYNGOLARYNGEAL PAIN [None]
  - PNEUMONIA [None]
  - STEVENS-JOHNSON SYNDROME [None]
  - STOMATITIS [None]
  - TONGUE ULCERATION [None]
